FAERS Safety Report 22532174 (Version 1)
Quarter: 2023Q2

REPORT INFORMATION
  Report Type: Spontaneous
  Country: US (occurrence: None)
  Receive Date: 20230606
  Receipt Date: 20230606
  Transmission Date: 20230722
  Serious: No
  Sender: FDA-Public Use
  Company Number: None

PATIENT
  Age: 70 Year
  Sex: Male

DRUGS (1)
  1. TOBRAMYCIN [Suspect]
     Active Substance: TOBRAMYCIN
     Dosage: FREQUENCY : TWICE A DAY;?
     Route: 045

REACTIONS (4)
  - Lung disorder [None]
  - Bronchial secretion retention [None]
  - Oxygen saturation decreased [None]
  - Heart rate irregular [None]

NARRATIVE: CASE EVENT DATE: 20230606
